FAERS Safety Report 23326907 (Version 1)
Quarter: 2023Q4

REPORT INFORMATION
  Report Type: Spontaneous
  Country: US (occurrence: None)
  Receive Date: 20231221
  Receipt Date: 20231221
  Transmission Date: 20240110
  Serious: No
  Sender: FDA-Public Use
  Company Number: None

PATIENT
  Sex: Male

DRUGS (3)
  1. EVEROLIMUS [Suspect]
     Active Substance: EVEROLIMUS
     Indication: Renal cancer
     Dosage: FREQUENCY : DAILY;?
     Route: 048
     Dates: start: 202210
  2. STELARA [Concomitant]
  3. LENVIMA [Concomitant]
     Active Substance: LENVATINIB

REACTIONS (3)
  - Back pain [None]
  - Rash [None]
  - Drug ineffective [None]
